FAERS Safety Report 7487437-1 (Version None)
Quarter: 2011Q2

REPORT INFORMATION
  Report Type: 
  Country: None (occurrence: None)
  Receive Date: 20110518
  Receipt Date: 20110505
  Transmission Date: 20111010
  Serious: Yes (Other)
  Sender: FDA-Public Use
  Company Number: DE-JNJFOC-20110502986

PATIENT
  Age: 16 Year
  Sex: Male

DRUGS (2)
  1. HALOPERIDOL [Suspect]
     Indication: TOURETTE'S DISORDER
     Route: 065
  2. RISPERDAL [Suspect]
     Indication: TOURETTE'S DISORDER
     Route: 065

REACTIONS (5)
  - SUICIDAL IDEATION [None]
  - SOCIAL AVOIDANT BEHAVIOUR [None]
  - TOURETTE'S DISORDER [None]
  - OFF LABEL USE [None]
  - DEPRESSION [None]
